FAERS Safety Report 6847434-3 (Version None)
Quarter: 2010Q3

REPORT INFORMATION
  Report Type: 
  Country: None (occurrence: None)
  Receive Date: 20100716
  Receipt Date: 20100713
  Transmission Date: 20110219
  Serious: Yes (Death)
  Sender: FDA-Public Use
  Company Number: US-ASTRAZENECA-2008UW18532

PATIENT
  Sex: Female

DRUGS (4)
  1. SEROQUEL [Suspect]
     Route: 048
     Dates: start: 20040527
  2. AMBIEN [Concomitant]
     Route: 048
     Dates: start: 20031224
  3. CLONAZEPAM [Concomitant]
     Route: 048
     Dates: start: 20040525
  4. ALPRAZOLAM [Concomitant]
     Route: 048
     Dates: start: 20040525

REACTIONS (2)
  - DEATH [None]
  - ILL-DEFINED DISORDER [None]
